FAERS Safety Report 25131561 (Version 1)
Quarter: 2025Q1

REPORT INFORMATION
  Report Type: Spontaneous
  Country: JP (occurrence: JP)
  Receive Date: 20250327
  Receipt Date: 20250327
  Transmission Date: 20250408
  Serious: Yes (Other)
  Sender: ELI LILLY AND COMPANY
  Company Number: JP-ELI_LILLY_AND_COMPANY-JP202501016114

PATIENT
  Age: 61 Year
  Sex: Male
  Weight: 72.8 kg

DRUGS (7)
  1. RETEVMO [Suspect]
     Active Substance: SELPERCATINIB
     Indication: Lung adenocarcinoma
     Dosage: 160 MG, BID
     Route: 048
     Dates: start: 20241226, end: 20250106
  2. FERROUS SULFATE [Concomitant]
     Active Substance: FERROUS SULFATE
  3. ASTEMIZOLE [Concomitant]
     Active Substance: ASTEMIZOLE
  4. FUROSEMIDE [Concomitant]
     Active Substance: FUROSEMIDE
  5. NIFEDIPINE [Concomitant]
     Active Substance: NIFEDIPINE
  6. DAYVIGO [Concomitant]
     Active Substance: LEMBOREXANT
  7. KETOPROFEN [Concomitant]
     Active Substance: KETOPROFEN
     Route: 058

REACTIONS (1)
  - Nephrotic syndrome [Not Recovered/Not Resolved]

NARRATIVE: CASE EVENT DATE: 20250106
